FAERS Safety Report 5836555-X (Version None)
Quarter: 2008Q3

REPORT INFORMATION
  Report Type: 
  Country: None (occurrence: None)
  Receive Date: 20080807
  Receipt Date: 20080731
  Transmission Date: 20090109
  Serious: Yes (Death)
  Sender: FDA-Public Use
  Company Number: GB-TEVA-173610ISR

PATIENT
  Age: 20 Year
  Sex: Male

DRUGS (3)
  1. DIAZEPAM [Suspect]
     Indication: ANXIETY
  2. FENTANYL-100 [Suspect]
     Indication: INTENTIONAL DRUG MISUSE
     Route: 062
  3. TRAMADOL HYDROCHLORIDE [Suspect]
     Indication: PAIN

REACTIONS (4)
  - DRUG ABUSE [None]
  - PNEUMONIA [None]
  - RESPIRATORY DEPRESSION [None]
  - SELF INJURIOUS BEHAVIOUR [None]
